FAERS Safety Report 15232366 (Version 3)
Quarter: 2018Q3

REPORT INFORMATION
  Report Type: Spontaneous
  Country: US (occurrence: US)
  Receive Date: 20180802
  Receipt Date: 20180903
  Transmission Date: 20181010
  Serious: Yes (Other)
  Sender: FDA-Public Use
  Company Number: PHHY2018US055395

PATIENT
  Sex: Male

DRUGS (5)
  1. TETRACAINE. [Suspect]
     Active Substance: TETRACAINE
     Indication: ULCERATIVE KERATITIS
     Route: 047
  2. TETRACAINE. [Suspect]
     Active Substance: TETRACAINE
     Indication: CONJUNCTIVAL HAEMORRHAGE
  3. IBUPROFEN. [Concomitant]
     Active Substance: IBUPROFEN
     Indication: ULCERATIVE KERATITIS
     Route: 065
  4. IBUPROFEN. [Concomitant]
     Active Substance: IBUPROFEN
     Indication: CONJUNCTIVAL HAEMORRHAGE
  5. FLUOR?I?STRIP [Concomitant]
     Active Substance: FLUORESCEIN SODIUM
     Indication: OPHTHALMOLOGICAL EXAMINATION
     Route: 065

REACTIONS (6)
  - Anhedonia [Unknown]
  - Hyphaema [Unknown]
  - Hypopyon [Unknown]
  - Product use in unapproved indication [Unknown]
  - Blindness unilateral [Unknown]
  - Emotional distress [Unknown]
